FAERS Safety Report 19511272 (Version 2)
Quarter: 2025Q2

REPORT INFORMATION
  Report Type: Spontaneous
  Country: FR (occurrence: FR)
  Receive Date: 20210709
  Receipt Date: 20250626
  Transmission Date: 20250716
  Serious: Yes (Other)
  Sender: AUROBINDO
  Company Number: FR-MLMSERVICE-20210624-2964715-1

PATIENT
  Age: 88 Year
  Sex: Female

DRUGS (3)
  1. CIPROFLOXACIN [Interacting]
     Active Substance: CIPROFLOXACIN
     Indication: Urinary tract infection
     Dosage: 250 MILLIGRAM, TWO TIMES A DAY (FROM OCTOBER 5TH TO 15TH)
     Route: 048
  2. METHOTREXATE [Interacting]
     Active Substance: METHOTREXATE
     Indication: Rheumatoid arthritis
     Dosage: 10 MILLIGRAM, EVERY WEEK
     Route: 048
     Dates: start: 2013
  3. AMOXICILLIN\CLAVULANATE POTASSIUM [Concomitant]
     Active Substance: AMOXICILLIN\CLAVULANATE POTASSIUM
     Indication: Product used for unknown indication
     Route: 065

REACTIONS (7)
  - Haematoma [Unknown]
  - Pancytopenia [Recovered/Resolved]
  - Haematotoxicity [Recovered/Resolved]
  - Lung disorder [Unknown]
  - Lower respiratory tract congestion [Unknown]
  - Hepatotoxicity [Unknown]
  - Drug interaction [Unknown]
